FAERS Safety Report 13226524 (Version 1)
Quarter: 2017Q1

REPORT INFORMATION
  Report Type: Spontaneous
  Country: US (occurrence: US)
  Receive Date: 20170213
  Receipt Date: 20170213
  Transmission Date: 20170428
  Serious: Yes (Other)
  Sender: FDA-Public Use
  Company Number: US-JNJFOC-20170206381

PATIENT
  Age: 42 Year
  Sex: Male

DRUGS (1)
  1. TOPAMAX [Suspect]
     Active Substance: TOPIRAMATE
     Indication: PRODUCT USED FOR UNKNOWN INDICATION
     Route: 048
     Dates: end: 20170206

REACTIONS (3)
  - Bipolar II disorder [Unknown]
  - Anger [Unknown]
  - Malaise [Unknown]

NARRATIVE: CASE EVENT DATE: 20170206
